FAERS Safety Report 8347417-0 (Version None)
Quarter: 2012Q2

REPORT INFORMATION
  Report Type: 
  Country: None (occurrence: None)
  Receive Date: 20120509
  Receipt Date: 20120424
  Transmission Date: 20120825
  Serious: Yes (Other)
  Sender: FDA-Public Use
  Company Number: UY-ROCHE-1061658

PATIENT
  Sex: Female
  Weight: 80 kg

DRUGS (3)
  1. OMEPRAZOLE [Concomitant]
  2. ORLISTAT [Suspect]
     Indication: OVERWEIGHT
     Dosage: 1 DAY
     Route: 048
     Dates: start: 20040101, end: 20120404
  3. EMODIN [Concomitant]

REACTIONS (7)
  - HYPERHIDROSIS [None]
  - HERPES VIRUS INFECTION [None]
  - GAMMA-GLUTAMYLTRANSFERASE INCREASED [None]
  - PALPITATIONS [None]
  - ARRHYTHMIA [None]
  - UNEVALUABLE EVENT [None]
  - BLOOD ALKALINE PHOSPHATASE INCREASED [None]
